FAERS Safety Report 4423468-3 (Version None)
Quarter: 2004Q3

REPORT INFORMATION
  Report Type: 
  Country: None (occurrence: None)
  Receive Date: 20040713
  Receipt Date: 20040423
  Transmission Date: 20050211
  Serious: No
  Sender: FDA-Public Use
  Company Number: PHEH2004US03686

PATIENT
  Age: 40 Year
  Sex: Male
  Weight: 86.2 kg

DRUGS (2)
  1. ELIDEL [Suspect]
     Indication: ECZEMA
     Dosage: BID, TOPICAL
     Route: 061
     Dates: start: 20040318, end: 20040325
  2. FLEXERIL [Concomitant]

REACTIONS (2)
  - CONDITION AGGRAVATED [None]
  - HERPES SIMPLEX [None]
